FAERS Safety Report 9846130 (Version 1)
Quarter: 2014Q1

REPORT INFORMATION
  Report Type: Spontaneous
  Country: HR (occurrence: HR)
  Receive Date: 20140127
  Receipt Date: 20140127
  Transmission Date: 20141002
  Serious: Yes (Hospitalization, Other)
  Sender: FDA-Public Use
  Company Number: HR-TEVA-456681ISR

PATIENT
  Age: 53 Year
  Sex: Male

DRUGS (4)
  1. ODONAZIN [Suspect]
     Indication: DEPRESSION
     Dosage: 30 MILLIGRAM DAILY; TABLETS, TONGUE SOLUBLE
     Route: 048
     Dates: start: 20130901
  2. LOQUEN [Interacting]
     Indication: MAJOR DEPRESSION
     Dosage: 25 MILLIGRAM DAILY; UNSPECIFIED
     Route: 048
     Dates: start: 20130901
  3. PHOLCODIN [Concomitant]
     Indication: COUGH
     Dosage: CAPSULES
     Route: 048
  4. BUSCOPAN [Concomitant]
     Indication: IRRITABLE BOWEL SYNDROME
     Dosage: 40 MILLIGRAM DAILY; UNSPECIFIED

REACTIONS (14)
  - Pyrexia [Recovered/Resolved]
  - Pyrexia [Recovered/Resolved]
  - Chills [Recovered/Resolved]
  - Hyperhidrosis [Recovered/Resolved]
  - Headache [Recovered/Resolved]
  - Erythema [Recovered/Resolved]
  - Fatigue [Recovered/Resolved]
  - Nausea [Recovered/Resolved]
  - Vomiting [Recovered/Resolved]
  - Diarrhoea [Recovered/Resolved]
  - Faeces discoloured [Recovered/Resolved]
  - Oliguria [Recovered/Resolved]
  - Serotonin syndrome [Recovered/Resolved]
  - Drug interaction [Unknown]
